FAERS Safety Report 7101864-3 (Version None)
Quarter: 2010Q4

REPORT INFORMATION
  Report Type: 
  Country: None (occurrence: None)
  Receive Date: 20101108
  Receipt Date: 20101026
  Transmission Date: 20110411
  Serious: Yes (Hospitalization)
  Sender: FDA-Public Use
  Company Number: 2010AP002274

PATIENT
  Age: 72 Year
  Sex: Male

DRUGS (3)
  1. CARBAMAZEPINE [Suspect]
     Indication: NEURALGIA
     Dosage: 100 MG; BID PO, 100 MG; TAB; PO; BID
     Route: 048
     Dates: start: 20100908, end: 20100912
  2. TAMSULOSIN HCL [Concomitant]
  3. DUTASTERIDE (DUTASTERIDE) [Concomitant]

REACTIONS (2)
  - LIVER FUNCTION TEST ABNORMAL [None]
  - MALAISE [None]
